FAERS Safety Report 7170158-2 (Version None)
Quarter: 2010Q4

REPORT INFORMATION
  Report Type: 
  Country: None (occurrence: None)
  Receive Date: 20101217
  Receipt Date: 20101208
  Transmission Date: 20110411
  Serious: Yes (Hospitalization)
  Sender: FDA-Public Use
  Company Number: JP-JNJFOC-20101204272

PATIENT
  Sex: Female
  Weight: 61 kg

DRUGS (13)
  1. GOLIMUMAB [Suspect]
     Indication: RHEUMATOID ARTHRITIS
     Route: 058
  2. PLACEBO [Suspect]
     Indication: RHEUMATOID ARTHRITIS
     Route: 058
  3. METHOTREXATE [Concomitant]
     Indication: RHEUMATOID ARTHRITIS
     Route: 048
  4. LORFENAMIN [Concomitant]
     Indication: RHEUMATOID ARTHRITIS
     Route: 048
  5. LOXONIN [Concomitant]
     Indication: RHEUMATOID ARTHRITIS
     Route: 003
  6. PREDONINE [Concomitant]
     Indication: RHEUMATOID ARTHRITIS
     Route: 003
  7. TAKEPRON [Concomitant]
     Indication: GASTRITIS PROPHYLAXIS
     Route: 003
  8. FOLIC ACID [Concomitant]
     Indication: FOLATE DEFICIENCY
     Route: 048
  9. KARY UNI [Concomitant]
     Indication: CATARACT
     Route: 031
  10. ACETANOL [Concomitant]
     Indication: HYPERTENSION
     Route: 048
  11. AZUCURENIN S [Concomitant]
     Indication: HYPERTENSION
     Route: 048
  12. SODIUM ALGINATE [Concomitant]
     Indication: GASTRITIS PROPHYLAXIS
     Route: 048
  13. SODIUM HYALURONATE [Concomitant]
     Route: 031

REACTIONS (3)
  - GASTROENTERITIS [None]
  - LIVER FUNCTION TEST ABNORMAL [None]
  - VIRAL INFECTION [None]
